FAERS Safety Report 9332374 (Version 2)
Quarter: 2013Q3

REPORT INFORMATION
  Report Type: Spontaneous
  Country: FR (occurrence: FR)
  Receive Date: 20130606
  Receipt Date: 20130718
  Transmission Date: 20140515
  Serious: Yes (Other)
  Sender: FDA-Public Use
  Company Number: PHHY2013FR056441

PATIENT
  Age: 64 Year
  Sex: Female

DRUGS (2)
  1. ZOLEDRONATE [Suspect]
     Indication: OSTEOPOROSIS
     Dosage: 5 MG CUMULATIVE
  2. DICLOFENAC [Concomitant]
     Dosage: UNK UKN, UNK

REACTIONS (2)
  - Osteonecrosis of jaw [Unknown]
  - Inappropriate schedule of drug administration [Unknown]
